FAERS Safety Report 15316190 (Version 1)
Quarter: 2018Q3

REPORT INFORMATION
  Report Type: Spontaneous
  Country: US (occurrence: US)
  Receive Date: 20180816
  Receipt Date: 20180816
  Transmission Date: 20181010
  Serious: No
  Sender: FDA-Public Use
  Company Number: None

PATIENT
  Sex: Female

DRUGS (16)
  1. ATORVASTAIN [Concomitant]
     Active Substance: ATORVASTATIN
  2. GABAPENTIN. [Concomitant]
     Active Substance: GABAPENTIN
  3. AZATHIOPRINE. [Concomitant]
     Active Substance: AZATHIOPRINE
  4. CENTRUM [Concomitant]
     Active Substance: VITAMINS
  5. MONTELUKAST [Concomitant]
     Active Substance: MONTELUKAST SODIUM
  6. VITAMIN D [Concomitant]
     Active Substance: CHOLECALCIFEROL
  7. OCALIVA [Suspect]
     Active Substance: OBETICHOLIC ACID
     Indication: BILIARY CIRRHOSIS
     Route: 048
     Dates: start: 20170815
  8. AMLODIPINE [Concomitant]
     Active Substance: AMLODIPINE BESYLATE
  9. OMPRAZOLE [Concomitant]
     Active Substance: OMEPRAZOLE
  10. URSODIOL. [Concomitant]
     Active Substance: URSODIOL
  11. CALCIUM [Concomitant]
     Active Substance: CALCIUM
  12. TRAMADOL. [Concomitant]
     Active Substance: TRAMADOL
  13. PROBENECID. [Concomitant]
     Active Substance: PROBENECID
  14. XIFAXAN [Concomitant]
     Active Substance: RIFAXIMIN
  15. BENAZEPRIL AND HYDROCHLOROTHIAZIDE [Concomitant]
     Active Substance: BENAZEPRIL HYDROCHLORIDE\HYDROCHLOROTHIAZIDE
  16. VITAMIN E [Concomitant]
     Active Substance: .ALPHA.-TOCOPHEROL

REACTIONS (4)
  - Tremor [None]
  - Dizziness [None]
  - White blood cell count decreased [None]
  - Blister [None]
